FAERS Safety Report 9234011 (Version 1)
Quarter: 2013Q1

REPORT INFORMATION
  Report Type: Spontaneous
  Country: US (occurrence: None)
  Receive Date: 20121031
  Receipt Date: 20121031
  Transmission Date: 20140127
  Serious: No
  Sender: FDA-Public Use
  Company Number: PHEH2012US012935

PATIENT
  Age: 33 Year
  Sex: Female

DRUGS (4)
  1. GILENYA [Suspect]
     Indication: MULTIPLE SCLEROSIS
     Route: 048
     Dates: start: 20120626
  2. VALIUM (DIAZEPAM) [Concomitant]
  3. BENADRYL (AMMONIUM CHLORIDE, DIPHENHYDRAMINE HYDROCHLORIDE, MENTHOL, SODIUM CITRATE) [Concomitant]
  4. BETAMETHASONE VALERATE (BETAMETHASONE VALERATE) [Concomitant]

REACTIONS (2)
  - Suprapubic pain [None]
  - Urinary incontinence [None]
